FAERS Safety Report 8671457 (Version 4)
Quarter: 2012Q4

REPORT INFORMATION
  Report Type: 
  Country: US (occurrence: US)
  Receive Date: 20120718
  Receipt Date: 20121112
  Transmission Date: 20130627
  Serious: Yes (Hospitalization)
  Sender: FDA-Public Use
  Company Number: US-ACTELION-A-US2012-68538

PATIENT
  Age: 79 Year
  Sex: Female

DRUGS (2)
  1. TRACLEER [Suspect]
     Indication: PULMONARY ARTERIAL HYPERTENSION
     Dosage: UNK
     Route: 048
     Dates: start: 20040209
  2. SILDENAFIL [Concomitant]

REACTIONS (5)
  - Renal failure [Recovering/Resolving]
  - Hypoglycaemia [Recovering/Resolving]
  - Blood glucose decreased [Unknown]
  - Dehydration [Unknown]
  - Hypotension [Recovering/Resolving]
